FAERS Safety Report 8785615 (Version 5)
Quarter: 2014Q1

REPORT INFORMATION
  Report Type: Report from Study
  Country: JP (occurrence: JP)
  Receive Date: 20120914
  Receipt Date: 20140102
  Transmission Date: 20141002
  Serious: Yes (Hospitalization, Other)
  Sender: FDA-Public Use
  Company Number: JP-VERTEX PHARMACEUTICAL INC.-2012-020885

PATIENT
  Age: 43 Year
  Sex: Male

DRUGS (9)
  1. VX-950 (TELAPREVIR) [Suspect]
     Indication: CHRONIC HEPATITIS C
     Dosage: 1500 MG, QD
     Route: 048
     Dates: start: 20120522, end: 20120903
  2. PEGINTRON [Suspect]
     Indication: CHRONIC HEPATITIS C
     Dosage: 1.3 ?G/KG, QW
     Route: 058
     Dates: start: 20120522, end: 20120612
  3. PEGINTRON [Suspect]
     Dosage: 50 ?G, QW
     Route: 058
     Dates: start: 20120619, end: 20120626
  4. PEGINTRON [Suspect]
     Dosage: 80 ?G, QW
     Route: 058
     Dates: start: 20120724, end: 20120814
  5. PEGINTRON [Suspect]
     Dosage: 40 ?G, QW
     Route: 058
     Dates: start: 20120821, end: 20120911
  6. PEGINTRON [Suspect]
     Dosage: 50 ?G, QW
     Route: 058
     Dates: start: 20120918
  7. RIBAVIRIN [Suspect]
     Indication: CHRONIC HEPATITIS C
     Dosage: 800 MG, QD
     Route: 048
     Dates: start: 20120522, end: 20120912
  8. RIBAVIRIN [Suspect]
     Dosage: 600 MG, QD
     Route: 048
     Dates: start: 20120918
  9. ZYLORIC [Concomitant]
     Dosage: 2 DF, QD
     Route: 048
     Dates: start: 20120522, end: 20120911

REACTIONS (3)
  - White blood cell count decreased [Not Recovered/Not Resolved]
  - Anaemia [Not Recovered/Not Resolved]
  - Cholecystitis [Recovered/Resolved]
